FAERS Safety Report 10522007 (Version 1)
Quarter: 2014Q4

REPORT INFORMATION
  Report Type: Spontaneous
  Country: US (occurrence: None)
  Receive Date: 20141014
  Receipt Date: 20141014
  Transmission Date: 20150528
  Serious: Yes (Life-Threatening, Other)
  Sender: FDA-Public Use
  Company Number: US-H14001-14-00962

PATIENT
  Age: 27 Year
  Sex: Female

DRUGS (2)
  1. PHENYTOIN (PHENYTOIN) (UNKNOWN) (PHENYTOIN) [Suspect]
     Active Substance: PHENYTOIN
     Indication: SEIZURE
  2. CIPROFLOXACIN (CIPROFLOXACIN) (UNKNOWN) (CIPROFLOXACIN) [Suspect]
     Active Substance: CIPROFLOXACIN
     Indication: URINARY TRACT INFECTION

REACTIONS (3)
  - Withdrawal syndrome [None]
  - Accidental overdose [None]
  - Drug interaction [None]
